FAERS Safety Report 15650428 (Version 2)
Quarter: 2018Q4

REPORT INFORMATION
  Report Type: Spontaneous
  Country: CA (occurrence: CA)
  Receive Date: 20181123
  Receipt Date: 20181123
  Transmission Date: 20190205
  Serious: No
  Sender: FDA-Public Use
  Company Number: CA-LUPIN PHARMACEUTICALS INC.-2018-06632

PATIENT
  Age: 36 Year
  Sex: Male
  Weight: 93.88 kg

DRUGS (5)
  1. GLUCONORM SR [Suspect]
     Active Substance: METFORMIN HYDROCHLORIDE
     Indication: DIABETES MELLITUS
     Dosage: 1000 MG, BID
     Route: 048
     Dates: start: 20171111, end: 20180909
  2. ONDERO [Concomitant]
     Indication: DIABETES MELLITUS
     Dosage: 5 MG, QD IN THE MORNING
     Route: 065
     Dates: start: 20171111, end: 20180909
  3. REMYLIN D [Concomitant]
     Indication: SUPPLEMENTATION THERAPY
     Dosage: 1000 IU, QD ONCE DAILY AT NIGHT
     Route: 048
     Dates: start: 20171111
  4. TELMA [Concomitant]
     Active Substance: TELMISARTAN
     Dosage: 20 MG, QD (RESTATRTED AT NIGHT)
     Route: 048
  5. TELMA [Concomitant]
     Active Substance: TELMISARTAN
     Indication: BLOOD PRESSURE ABNORMAL
     Dosage: 20 MG, QD AT NIGHT
     Route: 048
     Dates: start: 201805, end: 20180909

REACTIONS (5)
  - Heart rate increased [Unknown]
  - Hypertension [Unknown]
  - Muscular weakness [Recovered/Resolved]
  - Asthenia [Recovered/Resolved]
  - Dizziness [Unknown]

NARRATIVE: CASE EVENT DATE: 201801
